FAERS Safety Report 5045598-8 (Version None)
Quarter: 2006Q3

REPORT INFORMATION
  Report Type: 
  Country: None (occurrence: None)
  Receive Date: 20060707
  Receipt Date: 20060628
  Transmission Date: 20061208
  Serious: Yes (Hospitalization)
  Sender: FDA-Public Use
  Company Number: FR-ROCHE-453609

PATIENT
  Age: 70 Year
  Sex: Female

DRUGS (11)
  1. ROCALTROL [Suspect]
     Indication: DRUG USE FOR UNKNOWN INDICATION
     Dosage: LONG TERM TREATMENT PRIOR TO FEBRUARY 2006.
     Route: 048
  2. ROCALTROL [Suspect]
     Route: 048
     Dates: start: 20060215
  3. MYFORTIC [Concomitant]
     Route: 048
  4. NEORAL [Concomitant]
     Route: 048
  5. RENAGEL [Concomitant]
     Dosage: TAKEN IN THE MORNING
  6. ASPEGIC 1000 [Concomitant]
  7. FERROGRAD [Concomitant]
  8. LASILIX [Concomitant]
     Route: 048
  9. MOPRAL [Concomitant]
     Route: 048
  10. ZOCOR [Concomitant]
  11. DILTIAZEM HCL [Concomitant]
     Dosage: DRUG REPORTED AS ^MONO-TILDIEM LP 300^

REACTIONS (3)
  - HYPERCALCAEMIA [None]
  - OVERDOSE [None]
  - RENAL FAILURE ACUTE [None]
